FAERS Safety Report 6294407-8 (Version None)
Quarter: 2009Q3

REPORT INFORMATION
  Report Type: 
  Country: None (occurrence: None)
  Receive Date: 20090731
  Receipt Date: 20090731
  Transmission Date: 20100115
  Serious: Yes (Other)
  Sender: FDA-Public Use
  Company Number: None

PATIENT
  Sex: Female
  Weight: 77.1115 kg

DRUGS (1)
  1. LAMOTRIGINE [Suspect]
     Dosage: 300MG DAILY PO
     Route: 048
     Dates: start: 20080101, end: 20081125

REACTIONS (6)
  - APHASIA [None]
  - BALANCE DISORDER [None]
  - CLUMSINESS [None]
  - PRODUCT SUBSTITUTION ISSUE [None]
  - PSYCHOMOTOR HYPERACTIVITY [None]
  - RASH [None]
